FAERS Safety Report 8525445-X (Version None)
Quarter: 2012Q3

REPORT INFORMATION
  Report Type: 
  Country: None (occurrence: None)
  Receive Date: 20120720
  Receipt Date: 20120711
  Transmission Date: 20120928
  Serious: Yes (Other)
  Sender: FDA-Public Use
  Company Number: IN-COVIDIEN/TYCO HEALTHCARE/MALLINCKRODT-T201202802

PATIENT

DRUGS (7)
  1. CLONIDINE [Concomitant]
     Dosage: 4 UG/KG, SINGLE
     Route: 048
  2. LACTATED RINGER'S [Concomitant]
     Dosage: 5 ML/KG/HR
     Route: 042
  3. GLYCOPYRROLATE                     /00196202/ [Concomitant]
     Dosage: 5 MCG/KG
     Route: 042
  4. DEXTROSE [Concomitant]
     Dosage: 5 ML, SINGLE
     Route: 048
  5. SODIUM CHLORIDE [Suspect]
     Dosage: 5 ML
     Route: 042
  6. FENTANYL CITRATE [Suspect]
     Indication: AIRWAY PATENCY OESOPHAGEAL DEVICE
     Dosage: 1 UG/KG
     Route: 042
  7. PROPOFOL [Concomitant]
     Indication: ANAESTHESIA
     Dosage: 3.0 MG/KG
     Route: 042

REACTIONS (2)
  - HYPOXIA [None]
  - LARYNGOSPASM [None]
